FAERS Safety Report 17206849 (Version 1)
Quarter: 2019Q4

REPORT INFORMATION
  Report Type: Spontaneous
  Country: SE (occurrence: SE)
  Receive Date: 20191227
  Receipt Date: 20191227
  Transmission Date: 20200122
  Serious: Yes (Hospitalization)
  Sender: FDA-Public Use
  Company Number: SE-TEVA-2019-SE-1157309

PATIENT
  Sex: Female

DRUGS (6)
  1. CAMPRAL [Suspect]
     Active Substance: ACAMPROSATE CALCIUM
     Route: 048
     Dates: start: 20181215, end: 20181215
  2. PROPAVAN [Suspect]
     Active Substance: PROPIOMAZINE
     Route: 048
     Dates: start: 20181215, end: 20181215
  3. CISORDINOL [Suspect]
     Active Substance: ZUCLOPENTHIXOL
     Route: 048
     Dates: start: 20181215, end: 20181215
  4. NOZINAN [Suspect]
     Active Substance: LEVOMEPROMAZINE
     Route: 048
     Dates: start: 20181215, end: 20181215
  5. OLANZAPINE. [Suspect]
     Active Substance: OLANZAPINE
     Route: 048
     Dates: start: 20181215, end: 20181215
  6. LAMICTAL [Suspect]
     Active Substance: LAMOTRIGINE
     Route: 048
     Dates: start: 20181215, end: 20181215

REACTIONS (5)
  - Somnolence [Unknown]
  - Intentional overdose [Unknown]
  - Hepatic enzyme increased [Unknown]
  - Urinary retention [Unknown]
  - Intentional self-injury [Unknown]

NARRATIVE: CASE EVENT DATE: 20181215
